FAERS Safety Report 9239843 (Version 1)
Quarter: 2013Q2

REPORT INFORMATION
  Report Type: Spontaneous
  Country: US (occurrence: US)
  Receive Date: 20130418
  Receipt Date: 20130418
  Transmission Date: 20140414
  Serious: No
  Sender: FDA-Public Use
  Company Number: US-SANOFI-AVENTIS-2012SA027104

PATIENT
  Age: 67 Year
  Sex: Male

DRUGS (2)
  1. ENOXAPARIN SODIUM [Suspect]
     Indication: PULMONARY EMBOLISM
     Route: 065
     Dates: start: 20120415
  2. COUMADIN [Concomitant]

REACTIONS (2)
  - Middle insomnia [Not Recovered/Not Resolved]
  - Night sweats [Not Recovered/Not Resolved]
